FAERS Safety Report 5851563-0 (Version None)
Quarter: 2008Q3

REPORT INFORMATION
  Report Type: 
  Country: None (occurrence: None)
  Receive Date: 20080820
  Receipt Date: 20080813
  Transmission Date: 20090109
  Serious: Yes (Hospitalization)
  Sender: FDA-Public Use
  Company Number: MX-ELI_LILLY_AND_COMPANY-MX200708000593

PATIENT
  Age: 32 Year
  Sex: Female

DRUGS (7)
  1. PROZAC [Suspect]
     Dosage: 20 MG, DAILY (1/D)
     Dates: start: 20070401
  2. PROZAC [Suspect]
     Dosage: UNK, DAILY (1/D)
     Route: 065
  3. TRYPTANOL [Concomitant]
     Dosage: UNK, UNKNOWN
     Route: 065
  4. EUTIROX [Concomitant]
     Dosage: 50 UG, DAILY (1/D)
     Route: 065
  5. ZOFRAN [Concomitant]
     Dosage: UNK, DAILY (1/D)
     Route: 065
  6. PEMIX [Concomitant]
     Dosage: 1 MG, DAILY (1/D)
     Route: 065
  7. FOLIC ACID [Concomitant]
     Dosage: UNK, UNKNOWN
     Route: 065

REACTIONS (7)
  - ANAEMIA [None]
  - CERVIX CERCLAGE PROCEDURE [None]
  - DRUG EXPOSURE DURING PREGNANCY [None]
  - NAUSEA [None]
  - PREGNANCY [None]
  - UTERINE HYPERTONUS [None]
  - VOMITING [None]
